FAERS Safety Report 4956235-2 (Version None)
Quarter: 2006Q1

REPORT INFORMATION
  Report Type: 
  Country: None (occurrence: None)
  Receive Date: 20060329
  Receipt Date: 20060316
  Transmission Date: 20060701
  Serious: Yes (Hospitalization)
  Sender: FDA-Public Use
  Company Number: US-JNJFOC-20060305096

PATIENT
  Sex: Female
  Weight: 73.03 kg

DRUGS (13)
  1. DURAGESIC-100 [Suspect]
     Route: 062
  2. FENTANYL [Suspect]
     Route: 062
  3. NEURONTIN [Concomitant]
     Indication: BACK PAIN
     Dosage: 600 MG, AM, 300 MG, AFTERNOON, 1200 MG, AT NIGHT, ORAL
     Route: 048
  4. ALBUTEROL [Concomitant]
     Indication: ASTHMA
     Route: 055
  5. ATENOLOL [Concomitant]
     Route: 048
  6. ZOLOFT [Concomitant]
     Indication: DEPRESSION
     Route: 048
  7. PRILOSEC [Concomitant]
     Route: 048
  8. ALLEGRA [Concomitant]
     Indication: ASTHMA
     Route: 048
  9. FLONASE [Concomitant]
     Indication: ASTHMA
     Route: 045
  10. FLOVENT [Concomitant]
     Indication: ASTHMA
     Route: 055
  11. LOVASTATIN [Concomitant]
     Route: 048
  12. COUMADIN [Concomitant]
     Route: 048
  13. AMBIEN [Concomitant]
     Route: 048

REACTIONS (4)
  - APPLICATION SITE EXFOLIATION [None]
  - APPLICATION SITE PRURITUS [None]
  - APPLICATION SITE VESICLES [None]
  - LUNG NEOPLASM MALIGNANT [None]
